FAERS Safety Report 19488502 (Version 1)
Quarter: 2021Q3

REPORT INFORMATION
  Report Type: Spontaneous
  Country: GB (occurrence: GB)
  Receive Date: 20210702
  Receipt Date: 20210702
  Transmission Date: 20211014
  Serious: Yes (Other)
  Sender: FDA-Public Use
  Company Number: GB-SA-2021SA008551

PATIENT
  Age: 57 Year
  Sex: Female

DRUGS (104)
  1. ONDANSETRON [Concomitant]
     Active Substance: ONDANSETRON
     Indication: PRODUCT USED FOR UNKNOWN INDICATION
     Dosage: UNK
     Route: 048
     Dates: start: 20150508, end: 20150904
  2. VINORELBINE TARTRATE. [Suspect]
     Active Substance: VINORELBINE TARTRATE
     Indication: BREAST CANCER METASTATIC
     Dosage: 100 MG, QD
     Route: 048
     Dates: start: 20161111
  3. TRASTUZUMAB EMTANSINE [Suspect]
     Active Substance: ADO-TRASTUZUMAB EMTANSINE
     Dosage: 462 MG, Q3W  (LOADING DOSE)
     Route: 042
     Dates: start: 20150506, end: 20150506
  4. DEXAMETHASONE. [Concomitant]
     Active Substance: DEXAMETHASONE
     Dosage: 1 DF, QD
     Route: 048
     Dates: start: 201607, end: 20160921
  5. LEVETIRACETAM. [Concomitant]
     Active Substance: LEVETIRACETAM
     Dosage: 2 DF, QD
     Route: 048
     Dates: start: 20160727, end: 20160810
  6. CODEINE [Concomitant]
     Active Substance: CODEINE
     Dosage: UNK
     Route: 048
  7. IBUPROFENE [Concomitant]
     Active Substance: IBUPROFEN
     Indication: HEADACHE
     Dosage: 1 DF, QD
     Route: 048
     Dates: start: 20170201
  8. LACTULOSE. [Concomitant]
     Active Substance: LACTULOSE
     Indication: NEURALGIA
     Dosage: UNK
     Route: 048
     Dates: start: 201603, end: 20171021
  9. LACTULOSE. [Concomitant]
     Active Substance: LACTULOSE
     Dosage: UNK, QM
     Route: 048
     Dates: start: 20170201, end: 201703
  10. SENNA ALEXANDRINA [Concomitant]
     Active Substance: SENNA LEAF
     Indication: CONSTIPATION
     Dosage: UNK
     Route: 048
     Dates: start: 20161221, end: 20170327
  11. PERTUZUMAB. [Suspect]
     Active Substance: PERTUZUMAB
     Dosage: 2520 MG, (7 DAYS(LOADING DOSE )
     Route: 042
     Dates: start: 20150507
  12. TRASTUZUMAB EMTANSINE [Suspect]
     Active Substance: ADO-TRASTUZUMAB EMTANSINE
     Dosage: 1 DF, QW (1 OT, QW (20 JUN 2017) )
     Route: 042
  13. ACCRETE D3 [Concomitant]
     Active Substance: CALCIUM CARBONATE\CHOLECALCIFEROL
     Indication: PRODUCT USED FOR UNKNOWN INDICATION
     Dosage: UNK
     Dates: end: 20171027
  14. AMITRIPTYLINE [Concomitant]
     Active Substance: AMITRIPTYLINE
     Indication: PRODUCT USED FOR UNKNOWN INDICATION
     Dosage: 10 MG, QD
     Route: 048
     Dates: start: 201603
  15. DEXAMETHASONE. [Concomitant]
     Active Substance: DEXAMETHASONE
     Indication: PRODUCT USED FOR UNKNOWN INDICATION
     Dosage: 8 MG
     Route: 048
     Dates: start: 20150504, end: 20150904
  16. DEXAMETHASONE. [Concomitant]
     Active Substance: DEXAMETHASONE
     Dosage: 1 DF, QD
     Dates: start: 20170216, end: 20170830
  17. DEXAMETHASONE. [Concomitant]
     Active Substance: DEXAMETHASONE
     Dosage: 1 DF, QD
     Route: 048
     Dates: start: 20160713, end: 201607
  18. DEXAMETHASONE. [Concomitant]
     Active Substance: DEXAMETHASONE
     Dosage: 1 DF, QD
     Route: 048
     Dates: start: 20170216, end: 20170830
  19. DEXAMETHASONE. [Concomitant]
     Active Substance: DEXAMETHASONE
     Dosage: 2 MG
     Route: 048
     Dates: start: 20160713, end: 20161004
  20. DEXAMETHASONE. [Concomitant]
     Active Substance: DEXAMETHASONE
     Dosage: UNK
     Route: 048
     Dates: start: 20150506, end: 20150717
  21. LEVETIRACETAM. [Concomitant]
     Active Substance: LEVETIRACETAM
     Indication: EPILEPSY
     Dosage: 250 MG
     Route: 048
     Dates: start: 20160727, end: 20171027
  22. LEVETIRACETAM. [Concomitant]
     Active Substance: LEVETIRACETAM
     Dosage: UNK, QD
     Route: 048
     Dates: start: 20160727, end: 20160810
  23. LOSARTAN. [Concomitant]
     Active Substance: LOSARTAN
     Indication: PALPITATIONS
     Dosage: 50 MG
     Route: 048
     Dates: start: 20160602, end: 20171027
  24. CALCIUM GLUCONATE. [Concomitant]
     Active Substance: CALCIUM GLUCONATE
     Indication: PRODUCT USED FOR UNKNOWN INDICATION
     Dosage: UNK
     Route: 065
     Dates: start: 20170201
  25. LACTULOSE. [Concomitant]
     Active Substance: LACTULOSE
     Dosage: UNK
     Route: 048
     Dates: start: 20161221, end: 20171021
  26. RAMIPRIL. [Concomitant]
     Active Substance: RAMIPRIL
     Indication: COUGH
     Dosage: 5 MG, QD
     Route: 048
     Dates: start: 20160308, end: 20161005
  27. COCODAMOL [Concomitant]
     Active Substance: ACETAMINOPHEN\CODEINE PHOSPHATE
     Indication: HEADACHE
     Dosage: UNK
     Route: 048
     Dates: start: 20160929, end: 20171027
  28. EXEMESTANE. [Suspect]
     Active Substance: EXEMESTANE
     Dosage: 25 MG, QD
     Route: 048
  29. TRASTUZUMAB. [Suspect]
     Active Substance: TRASTUZUMAB
     Dosage: 1071 MG, Q3W
     Route: 042
     Dates: start: 20150527
  30. CAPECITABINE. [Suspect]
     Active Substance: CAPECITABINE
     Indication: BREAST CANCER
     Dosage: 3300 MG
     Route: 048
     Dates: start: 20160901, end: 20160914
  31. TRASTUZUMAB EMTANSINE [Suspect]
     Active Substance: ADO-TRASTUZUMAB EMTANSINE
     Dosage: 357 MG, Q3W
     Route: 042
     Dates: start: 20170620
  32. APREPITANT. [Concomitant]
     Active Substance: APREPITANT
     Indication: PROPHYLAXIS
     Dosage: UNK
     Dates: start: 20150527, end: 20150905
  33. CODEINE PHOSPHATE [Concomitant]
     Active Substance: CODEINE PHOSPHATE
     Indication: PRODUCT USED FOR UNKNOWN INDICATION
     Dosage: 60 MG, PRN
     Dates: start: 20150603
  34. CORSODYL [Concomitant]
     Active Substance: CHLORHEXIDINE GLUCONATE
     Indication: MUCOSAL INFLAMMATION
     Dosage: UNK UNK, PRN (1 MOUTH WASH AS NEEDED
     Route: 048
     Dates: start: 20150514, end: 20150715
  35. DEXAMETHASONE. [Concomitant]
     Active Substance: DEXAMETHASONE
     Dosage: 2 MG, QD
     Route: 048
     Dates: start: 201612, end: 20170510
  36. DEXAMETHASONE. [Concomitant]
     Active Substance: DEXAMETHASONE
     Dosage: 2 MG
     Route: 048
     Dates: start: 20161004, end: 20161123
  37. FLUCLOXACILLIN [Concomitant]
     Active Substance: FLUCLOXACILLIN
     Indication: NAIL INFECTION
     Dosage: 250 MG, TID
     Dates: start: 20150603, end: 20150610
  38. FLUCLOXACILLIN [Concomitant]
     Active Substance: FLUCLOXACILLIN
     Dosage: 750 MG, QD
     Route: 048
  39. FLUCLOXACILLIN [Concomitant]
     Active Substance: FLUCLOXACILLIN
     Dosage: 750 MG, TID (750 MILLIGRAM, 3 TIMES A DAY(250 MILLIGRAM, TID )
     Route: 048
     Dates: start: 20150603, end: 20150610
  40. LOPERAMIDE [Concomitant]
     Active Substance: LOPERAMIDE
     Indication: PRODUCT USED FOR UNKNOWN INDICATION
     Dosage: 4 MG, PRN (AS NEEDED)
     Route: 048
     Dates: start: 20150514
  41. FLUCONAZOLE. [Concomitant]
     Active Substance: FLUCONAZOLE
     Indication: PRODUCT USED FOR UNKNOWN INDICATION
     Dosage: UNK
     Route: 048
     Dates: start: 20171004, end: 20171004
  42. HYDROCORTISONE. [Concomitant]
     Active Substance: HYDROCORTISONE
     Indication: RASH
     Dosage: UNK(LOTION APPLICATION
     Route: 061
  43. METOCLOPRAMIDE. [Concomitant]
     Active Substance: METOCLOPRAMIDE
     Indication: PRODUCT USED FOR UNKNOWN INDICATION
     Dosage: 2 DF, QD
     Route: 042
     Dates: start: 20150506, end: 20150903
  44. ONDANSETRON [Concomitant]
     Active Substance: ONDANSETRON
     Dosage: UNK
     Route: 048
     Dates: start: 20161111, end: 2016
  45. PARACETAMOL [Concomitant]
     Active Substance: ACETAMINOPHEN
     Indication: HEADACHE
     Dosage: UNK
     Route: 048
     Dates: start: 20160629, end: 20171027
  46. RAMIPRIL. [Concomitant]
     Active Substance: RAMIPRIL
     Indication: PALPITATIONS
     Dosage: 435 MG
     Route: 048
  47. ANASTROZOLE. [Suspect]
     Active Substance: ANASTROZOLE
     Dosage: 1 DF, QD
     Route: 048
  48. EXEMESTANE. [Suspect]
     Active Substance: EXEMESTANE
     Dosage: 1 DF, QD
     Route: 048
     Dates: start: 201607
  49. EXEMESTANE. [Suspect]
     Active Substance: EXEMESTANE
     Dosage: 25 MG, QD
     Route: 048
     Dates: start: 20151021
  50. PERTUZUMAB. [Suspect]
     Active Substance: PERTUZUMAB
     Indication: BREAST CANCER METASTATIC
     Dosage: 840 MG, Q3W
     Route: 042
     Dates: start: 20150507, end: 20150507
  51. PERTUZUMAB. [Suspect]
     Active Substance: PERTUZUMAB
     Dosage: 357 MG, Q3W
     Route: 042
     Dates: start: 20150527, end: 20160630
  52. DEXAMETHASONE. [Concomitant]
     Active Substance: DEXAMETHASONE
     Dosage: 8 MG, QD
     Route: 048
     Dates: start: 20161130, end: 20161201
  53. LEVETIRACETAM. [Concomitant]
     Active Substance: LEVETIRACETAM
     Indication: MUSCLE TWITCHING
     Dosage: UNK UNK, BID
     Route: 048
     Dates: start: 20160727, end: 20160810
  54. LEVETIRACETAM. [Concomitant]
     Active Substance: LEVETIRACETAM
     Dosage: 2 DF, QD
     Route: 048
     Dates: start: 20160811, end: 20161027
  55. PIRITON [Concomitant]
     Active Substance: CHLORPHENIRAMINE MALEATE
     Indication: RASH
     Dosage: 5 MG
     Route: 048
     Dates: start: 20150725
  56. CODEINE [Concomitant]
     Active Substance: CODEINE
     Indication: DIARRHOEA
     Dosage: UNK
     Route: 048
     Dates: start: 20150603, end: 2015
  57. LACTULOSE. [Concomitant]
     Active Substance: LACTULOSE
     Indication: CONSTIPATION
     Dosage: UNK
     Route: 048
  58. NITROFURANTOIN. [Concomitant]
     Active Substance: NITROFURANTOIN
     Indication: PRODUCT USED FOR UNKNOWN INDICATION
     Dosage: UNK
     Route: 065
     Dates: start: 20170621, end: 20170623
  59. PEGFILGRASTIM [Concomitant]
     Active Substance: PEGFILGRASTIM
     Dosage: UNK
     Route: 058
     Dates: start: 20150506, end: 20150903
  60. RAMIPRIL. [Concomitant]
     Active Substance: RAMIPRIL
     Dosage: UNK
     Route: 065
  61. TRIMETHOPRIM. [Concomitant]
     Active Substance: TRIMETHOPRIM
     Indication: URINARY TRACT INFECTION
     Dosage: UNK
     Route: 048
     Dates: start: 20170209, end: 20170216
  62. ANASTROZOLE. [Suspect]
     Active Substance: ANASTROZOLE
     Indication: BREAST CANCER METASTATIC
     Dosage: 1 MG, QD
     Route: 048
     Dates: start: 20151021
  63. EXEMESTANE. [Suspect]
     Active Substance: EXEMESTANE
     Indication: BREAST CANCER METASTATIC
     Dosage: 25 MG, QD
     Route: 048
     Dates: start: 20090921
  64. TRASTUZUMAB. [Suspect]
     Active Substance: TRASTUZUMAB
     Indication: PRODUCT USED FOR UNKNOWN INDICATION
     Dosage: 357 MG, QW
     Dates: start: 20150527
  65. VINORELBINE TARTRATE. [Suspect]
     Active Substance: VINORELBINE TARTRATE
     Indication: BREAST CANCER
     Dosage: UNK
  66. PERTUZUMAB. [Suspect]
     Active Substance: PERTUZUMAB
     Dosage: 420 MG, QW
     Route: 042
     Dates: start: 20150527
  67. TRASTUZUMAB EMTANSINE [Suspect]
     Active Substance: ADO-TRASTUZUMAB EMTANSINE
     Indication: BREAST CANCER METASTATIC
     Dosage: 1071 MG, QW (1071 MG, QW (357 MG, EVERY 3 WEEKS, LAST DOSE N 30 JUN 2016) )
     Route: 042
     Dates: start: 20150527
  68. TRASTUZUMAB EMTANSINE [Suspect]
     Active Substance: ADO-TRASTUZUMAB EMTANSINE
     Dosage: 224 MG, QOW
     Route: 042
     Dates: start: 20170620
  69. DEXAMETHASONE. [Concomitant]
     Active Substance: DEXAMETHASONE
     Dosage: 1 DF, QD
     Route: 048
     Dates: start: 20150506, end: 20150717
  70. LEVETIRACETAM. [Concomitant]
     Active Substance: LEVETIRACETAM
     Dosage: 2 DF, QD
     Route: 048
     Dates: start: 20160811, end: 20161027
  71. METOCLOPRAMIDE. [Concomitant]
     Active Substance: METOCLOPRAMIDE
     Dosage: UNK (UNK(SUBSEQUENT DOSE RECEIVED ON 18/NOV/2016 )
     Route: 048
     Dates: start: 20170301
  72. METOCLOPRAMIDE. [Concomitant]
     Active Substance: METOCLOPRAMIDE
     Dosage: UNK
     Route: 048
     Dates: start: 20150506, end: 2016
  73. METOCLOPRAMIDE. [Concomitant]
     Active Substance: METOCLOPRAMIDE
     Dosage: 2 DF, QD
     Route: 048
     Dates: start: 20170815, end: 2017
  74. SPIRONOLACTONE. [Concomitant]
     Active Substance: SPIRONOLACTONE
     Indication: PALPITATIONS
     Dosage: UNK
     Route: 048
     Dates: start: 20160602, end: 20171027
  75. PERTUZUMAB. [Suspect]
     Active Substance: PERTUZUMAB
     Dosage: 420 MG, QOW (2 WEEKS)
     Route: 042
     Dates: start: 20150527
  76. CALAMINE [Concomitant]
     Active Substance: CALAMINE\FERRIC OXIDE RED\ZINC OXIDE
     Indication: PRODUCT USED FOR UNKNOWN INDICATION
     Dosage: 1 DF, PRN
     Route: 061
     Dates: start: 20150915
  77. CYCLIZINE [Concomitant]
     Active Substance: CYCLIZINE
     Indication: PRODUCT USED FOR UNKNOWN INDICATION
     Dosage: 50 MG, PRN
     Route: 048
     Dates: start: 20150603
  78. DEXAMETHASONE. [Concomitant]
     Active Substance: DEXAMETHASONE
     Dosage: 1 DF, QD
     Route: 048
     Dates: start: 20161123, end: 20161130
  79. DEXAMETHASONE. [Concomitant]
     Active Substance: DEXAMETHASONE
     Dosage: UNK
     Route: 048
     Dates: start: 20160713, end: 201607
  80. LEVETIRACETAM. [Concomitant]
     Active Substance: LEVETIRACETAM
     Dosage: 250 MG
     Route: 048
     Dates: start: 20160727, end: 20171027
  81. QUININE SULFATE. [Concomitant]
     Active Substance: QUININE SULFATE
     Indication: MUSCLE SPASMS
     Dosage: 200 MG
     Route: 048
     Dates: start: 20161123
  82. BECLOMETASONE [Concomitant]
     Active Substance: BECLOMETHASONE DIPROPIONATE
     Indication: WHEEZING
     Dosage: UNK
     Route: 050
     Dates: start: 20160108
  83. METOCLOPRAMIDE. [Concomitant]
     Active Substance: METOCLOPRAMIDE
     Indication: PRODUCT USED FOR UNKNOWN INDICATION
     Dosage: UNK
     Route: 048
     Dates: start: 20170815, end: 2017
  84. METOCLOPRAMIDE. [Concomitant]
     Active Substance: METOCLOPRAMIDE
     Dosage: UNK, QD
     Route: 048
     Dates: start: 20170301, end: 2017
  85. VENTOLINE [SALBUTAMOL] [Concomitant]
     Active Substance: ALBUTEROL SULFATE
     Indication: WHEEZING
     Dosage: UNK
     Route: 065
     Dates: start: 20170621, end: 2017
  86. DOCETAXEL. [Suspect]
     Active Substance: DOCETAXEL
     Indication: BREAST CANCER METASTATIC
     Dosage: 130 MG, Q3W
     Route: 042
     Dates: start: 20150507, end: 20150903
  87. TRASTUZUMAB EMTANSINE [Suspect]
     Active Substance: ADO-TRASTUZUMAB EMTANSINE
     Dosage: 357 MG, QW
     Route: 042
     Dates: start: 20150527
  88. AMOXICILLIN. [Concomitant]
     Active Substance: AMOXICILLIN
     Indication: OROPHARYNGEAL PAIN
     Dosage: 9 DF, QD (3 DF, TID (3/DAY) )
     Route: 048
     Dates: start: 20151104, end: 20151111
  89. BISOPROLOL [Concomitant]
     Active Substance: BISOPROLOL
     Dosage: UNK
     Route: 048
     Dates: start: 20160602, end: 20171027
  90. CYCLIZINE [Concomitant]
     Active Substance: CYCLIZINE
     Dosage: 150 MG, QD
     Dates: start: 20150603, end: 20150715
  91. DEXAMETHASONE. [Concomitant]
     Active Substance: DEXAMETHASONE
     Dosage: 2 DF
     Route: 048
     Dates: start: 201612, end: 201612
  92. DEXAMETHASONE. [Concomitant]
     Active Substance: DEXAMETHASONE
     Dosage: 2 MG
     Route: 065
     Dates: start: 20161014
  93. METOCLOPRAMIDE. [Concomitant]
     Active Substance: METOCLOPRAMIDE
     Dosage: 2 DF, QD
     Route: 048
     Dates: start: 20170301, end: 2017
  94. LANSOPRAZOLE. [Concomitant]
     Active Substance: LANSOPRAZOLE
     Indication: PROPHYLAXIS
     Dosage: UNK
     Dates: start: 20150504, end: 20171027
  95. EXEMESTANE. [Suspect]
     Active Substance: EXEMESTANE
     Dosage: 25 MG, QD
     Route: 048
     Dates: start: 20150328
  96. TRASTUZUMAB. [Suspect]
     Active Substance: TRASTUZUMAB
     Indication: BREAST CANCER METASTATIC
     Dosage: 462 MG, Q3W
     Dates: start: 20150506, end: 20150506
  97. CAPECITABINE. [Suspect]
     Active Substance: CAPECITABINE
     Dosage: 1650 MG
     Route: 048
     Dates: start: 20150901, end: 20160914
  98. BISOPROLOL [Concomitant]
     Active Substance: BISOPROLOL
     Indication: PALPITATIONS
     Dosage: 1.25 MG
     Route: 048
     Dates: start: 20160602
  99. BISOPROLOL [Concomitant]
     Active Substance: BISOPROLOL
     Dosage: UNK
     Route: 048
     Dates: start: 20160602, end: 20171027
  100. DEXAMETHASONE. [Concomitant]
     Active Substance: DEXAMETHASONE
     Dosage: 1 DF, QD
     Route: 048
     Dates: start: 201612, end: 20170510
  101. DEXAMETHASONE. [Concomitant]
     Active Substance: DEXAMETHASONE
     Dosage: 1 DF, QD
     Route: 048
     Dates: start: 20161004, end: 20161123
  102. DEXAMETHASONE. [Concomitant]
     Active Substance: DEXAMETHASONE
     Dosage: 2 UNK
     Route: 065
     Dates: start: 20150504, end: 20150904
  103. LEVETIRACETAM. [Concomitant]
     Active Substance: LEVETIRACETAM
     Dosage: UNK, QD
     Route: 048
     Dates: start: 20160811, end: 20161027
  104. CODEINE [Concomitant]
     Active Substance: CODEINE
     Dosage: UNK
     Route: 048
     Dates: start: 20150603, end: 20150715

REACTIONS (30)
  - Diarrhoea [Recovered/Resolved]
  - Nail disorder [Recovered/Resolved]
  - Neuralgia [Not Recovered/Not Resolved]
  - Headache [Recovered/Resolved]
  - Weight decreased [Unknown]
  - Fatigue [Not Recovered/Not Resolved]
  - Vaginal discharge [Recovered/Resolved]
  - Palpitations [Not Recovered/Not Resolved]
  - Oropharyngeal pain [Recovered/Resolved]
  - Lacrimation increased [Not Recovered/Not Resolved]
  - Mucosal inflammation [Unknown]
  - Seizure [Unknown]
  - Hiccups [Recovered/Resolved]
  - Neuropathy peripheral [Not Recovered/Not Resolved]
  - Abdominal pain [Unknown]
  - Nausea [Recovered/Resolved]
  - Muscle twitching [Unknown]
  - Depressed mood [Not Recovered/Not Resolved]
  - Alopecia [Unknown]
  - Poor peripheral circulation [Unknown]
  - Nasopharyngitis [Recovered/Resolved]
  - Chest pain [Recovered/Resolved]
  - Urinary tract infection [Recovered/Resolved]
  - Nail infection [Recovered/Resolved]
  - Left ventricular dysfunction [Not Recovered/Not Resolved]
  - Muscle spasms [Unknown]
  - Rash [Recovered/Resolved]
  - Dizziness [Unknown]
  - Constipation [Recovered/Resolved]
  - Cough [Recovered/Resolved]

NARRATIVE: CASE EVENT DATE: 20150508
